FAERS Safety Report 13404246 (Version 5)
Quarter: 2017Q4

REPORT INFORMATION
  Report Type: Spontaneous
  Country: US (occurrence: US)
  Receive Date: 20170405
  Receipt Date: 20171124
  Transmission Date: 20180320
  Serious: Yes (Other)
  Sender: FDA-Public Use
  Company Number: PHEH2017US009892

PATIENT
  Age: 34 Year
  Sex: Female
  Weight: 65.76 kg

DRUGS (2)
  1. ZOFRAN [Suspect]
     Active Substance: ONDANSETRON HYDROCHLORIDE
     Indication: PRODUCT USED FOR UNKNOWN INDICATION
     Route: 048
  2. ONDANSETRONE DR. REDDY^S [Suspect]
     Active Substance: ONDANSETRON HYDROCHLORIDE
     Indication: VOMITING IN PREGNANCY
     Dosage: 01 DF, Q12H
     Route: 048
     Dates: start: 20120827, end: 20121001

REACTIONS (11)
  - Premature delivery [Unknown]
  - Emotional distress [Unknown]
  - Insomnia [Unknown]
  - Maternal exposure during pregnancy [Unknown]
  - Depression [Unknown]
  - Product use issue [Unknown]
  - Thyroid mass [Unknown]
  - Peripheral swelling [Unknown]
  - Pelvic congestion [Unknown]
  - Vitamin D deficiency [Unknown]
  - Anxiety [Unknown]

NARRATIVE: CASE EVENT DATE: 20130405
